FAERS Safety Report 4647999-6 (Version None)
Quarter: 2005Q2

REPORT INFORMATION
  Report Type: 
  Country: None (occurrence: None)
  Receive Date: 20050331
  Receipt Date: 20050117
  Transmission Date: 20051028
  Serious: No
  Sender: FDA-Public Use
  Company Number: 05P-163-0286940-00

PATIENT
  Age: 46 Year
  Sex: Female
  Weight: 86.1834 kg

DRUGS (10)
  1. HUMIRA [Suspect]
     Indication: RHEUMATOID ARTHRITIS
     Dosage: 40 MG, 1 IN 2 WK, SUBCUTANEOUS
     Route: 058
     Dates: start: 20040801
  2. TOTOLIN [Concomitant]
  3. FOLIC ACID [Concomitant]
  4. PANTOPRAZOLE [Concomitant]
  5. IMIPRAMINE [Concomitant]
  6. VICODIN [Concomitant]
  7. TRAMADOL HCL [Concomitant]
  8. DIAZEPAM [Concomitant]
  9. INDOMETHACIN [Concomitant]
  10. TRAZODONE HCL [Concomitant]

REACTIONS (4)
  - CHROMATURIA [None]
  - RASH [None]
  - URINE ABNORMALITY [None]
  - URINE ODOUR ABNORMAL [None]
